FAERS Safety Report 15058610 (Version 1)
Quarter: 2018Q2

REPORT INFORMATION
  Report Type: Spontaneous
  Country: CZ (occurrence: CZ)
  Receive Date: 20180625
  Receipt Date: 20180625
  Transmission Date: 20180711
  Serious: Yes (Other)
  Sender: FDA-Public Use
  Company Number: PHHY2018CZ025203

PATIENT
  Sex: Male
  Weight: 102 kg

DRUGS (1)
  1. VOTRIENT [Suspect]
     Active Substance: PAZOPANIB HYDROCHLORIDE
     Indication: RENAL CANCER
     Dosage: 800 MG, UNK
     Route: 065

REACTIONS (10)
  - Aspartate aminotransferase decreased [Unknown]
  - Weight decreased [Unknown]
  - Low density lipoprotein increased [Unknown]
  - Fatigue [Unknown]
  - Peripheral swelling [Unknown]
  - Hair colour changes [Unknown]
  - Psoriasis [Unknown]
  - Abdominal distension [Unknown]
  - Blood pressure increased [Unknown]
  - Dysgeusia [Unknown]
